FAERS Safety Report 5889980-5 (Version None)
Quarter: 2008Q3

REPORT INFORMATION
  Report Type: 
  Country: None (occurrence: None)
  Receive Date: 20080919
  Receipt Date: 20080910
  Transmission Date: 20090109
  Serious: Yes (Other)
  Sender: FDA-Public Use
  Company Number: US-PFIZER INC-2008040888

PATIENT
  Age: 64 Year
  Sex: Female
  Weight: 71.7 kg

DRUGS (3)
  1. CELEBREX [Suspect]
  2. ARTHROTEC [Suspect]
  3. NAPROXEN [Suspect]

REACTIONS (1)
  - GASTROINTESTINAL DISORDER [None]
